FAERS Safety Report 13368280 (Version 1)
Quarter: 2017Q1

REPORT INFORMATION
  Report Type: Spontaneous
  Country: GB (occurrence: GB)
  Receive Date: 20170324
  Receipt Date: 20170324
  Transmission Date: 20170429
  Serious: Yes (Other)
  Sender: FDA-Public Use
  Company Number: GB-SUN PHARMACEUTICAL INDUSTRIES LTD-2017RR-136484

PATIENT

DRUGS (1)
  1. CITALOPRAM [Suspect]
     Active Substance: CITALOPRAM HYDROBROMIDE
     Indication: ANXIETY
     Route: 048
     Dates: start: 20161104, end: 20161116

REACTIONS (4)
  - Anxiety [Recovered/Resolved]
  - Feelings of worthlessness [Unknown]
  - Heart rate increased [Recovered/Resolved]
  - Tachyphrenia [Recovered/Resolved]
